FAERS Safety Report 9365387 (Version 1)
Quarter: 2013Q2

REPORT INFORMATION
  Report Type: Report from Study
  Country: None (occurrence: US)
  Receive Date: 20130625
  Receipt Date: 20130625
  Transmission Date: 20140414
  Serious: Yes (Other)
  Sender: FDA-Public Use
  Company Number: US-ROCHE-1240449

PATIENT
  Sex: 0

DRUGS (2)
  1. CAPECITABINE [Suspect]
     Indication: NEOPLASM
     Dosage: TWICE DAILY FOR DAYS 1-14 OF 21-DAY CYCLES
     Route: 065
  2. AUY922 [Suspect]
     Indication: NEOPLASM
     Route: 042

REACTIONS (10)
  - Neutropenia [Unknown]
  - Diarrhoea [Unknown]
  - Bone marrow failure [Unknown]
  - Nausea [Unknown]
  - Fatigue [Unknown]
  - Palmar-plantar erythrodysaesthesia syndrome [Unknown]
  - Decreased appetite [Unknown]
  - Vomiting [Unknown]
  - Rash [Unknown]
  - Visual impairment [Unknown]
